FAERS Safety Report 15614356 (Version 1)
Quarter: 2018Q4

REPORT INFORMATION
  Report Type: Spontaneous
  Country: US (occurrence: US)
  Receive Date: 20181113
  Receipt Date: 20181113
  Transmission Date: 20190205
  Serious: No
  Sender: FDA-Public Use
  Company Number: US-BAUSCH-BL-2017-028758

PATIENT
  Sex: Female

DRUGS (2)
  1. NORITATE [Suspect]
     Active Substance: METRONIDAZOLE
     Indication: ROSACEA
     Dosage: USED ONCE IN THE PAST
     Route: 061
  2. NORITATE [Suspect]
     Active Substance: METRONIDAZOLE
     Route: 061
     Dates: start: 20171004

REACTIONS (3)
  - Unevaluable event [Not Recovered/Not Resolved]
  - Eye pain [Not Recovered/Not Resolved]
  - Rosacea [Not Recovered/Not Resolved]

NARRATIVE: CASE EVENT DATE: 201710
